FAERS Safety Report 12326189 (Version 2)
Quarter: 2016Q2

REPORT INFORMATION
  Report Type: Report from Study
  Country: GB (occurrence: GB)
  Receive Date: 20160503
  Receipt Date: 20160516
  Transmission Date: 20160815
  Serious: Yes (Hospitalization)
  Sender: FDA-Public Use
  Company Number: GB-BRISTOL-MYERS SQUIBB COMPANY-BMS-2016-034361

PATIENT
  Age: 75 Year
  Sex: Female
  Weight: 87.9 kg

DRUGS (2)
  1. NIVOLUMAB [Suspect]
     Active Substance: NIVOLUMAB
     Indication: NON-SMALL CELL LUNG CANCER
     Dosage: 264 MG, UNK
     Route: 065
     Dates: start: 20160307, end: 20160307
  2. NIVOLUMAB [Suspect]
     Active Substance: NIVOLUMAB
     Dosage: 264 MG, UNK
     Route: 065
     Dates: start: 20160321

REACTIONS (1)
  - Arthralgia [Recovering/Resolving]

NARRATIVE: CASE EVENT DATE: 20160321
